FAERS Safety Report 19819608 (Version 1)
Quarter: 2021Q3

REPORT INFORMATION
  Report Type: Spontaneous
  Country: BR (occurrence: BR)
  Receive Date: 20210913
  Receipt Date: 20210913
  Transmission Date: 20211014
  Serious: Yes (Other)
  Sender: FDA-Public Use
  Company Number: BR-NOVOPROD-844240

PATIENT
  Age: 61 Year
  Sex: Female
  Weight: 59.15 kg

DRUGS (7)
  1. HYDROCHLOROTHIAZIDE. [Concomitant]
     Active Substance: HYDROCHLOROTHIAZIDE
     Dosage: 25 MG, QD
  2. AMLODIPINE [Concomitant]
     Active Substance: AMLODIPINE BESYLATE
     Dosage: 5 MG, QD
  3. DAPAGLIFLOZIN. [Concomitant]
     Active Substance: DAPAGLIFLOZIN
     Dosage: UNK
  4. INSULATARD HM [Suspect]
     Active Substance: INSULIN HUMAN
     Indication: PRODUCT USED FOR UNKNOWN INDICATION
     Dosage: 46+10 + 10+0
     Route: 065
  5. LOSARTAN POTASSIUM. [Concomitant]
     Active Substance: LOSARTAN POTASSIUM
     Dosage: 50 MG, BID
     Route: 065
  6. SAXAGLIPTIN [Concomitant]
     Active Substance: SAXAGLIPTIN
     Dosage: UNK
  7. SIBUTRAMINE [Concomitant]
     Active Substance: SIBUTRAMINE
     Dosage: UNK

REACTIONS (11)
  - Hysterectomy [Unknown]
  - Thyroid cyst [Unknown]
  - Osteopenia [Unknown]
  - Diabetic retinopathy [Unknown]
  - Benign breast neoplasm [Unknown]
  - Hepatic steatosis [Unknown]
  - Candida infection [Unknown]
  - Blood pressure increased [Unknown]
  - Carotid artery disease [Unknown]
  - Herpes zoster [Unknown]
  - Perineoplasty [Unknown]

NARRATIVE: CASE EVENT DATE: 2015
